FAERS Safety Report 17120676 (Version 12)
Quarter: 2021Q2

REPORT INFORMATION
  Report Type: Report from Study
  Country: None (occurrence: BE)
  Receive Date: 20191206
  Receipt Date: 20210402
  Transmission Date: 20210716
  Serious: Yes (Other)
  Sender: FDA-Public Use
  Company Number: BE-ABBVIE-18S-013-2608595-00

PATIENT
  Age: 80 Year
  Sex: Female
  Weight: 46 kg

DRUGS (24)
  1. DUODOPA [Suspect]
     Active Substance: CARBIDOPA\LEVODOPA
     Dosage: MD=2.4ML CD=2.4ML/HR DURING 16HRS ED=0.3ML
     Route: 050
     Dates: start: 20190107, end: 20190121
  2. DUODOPA [Suspect]
     Active Substance: CARBIDOPA\LEVODOPA
     Dosage: MD= 3.1ML CD= 3.2ML/HR DURING 16HRS ED= 1.2ML
     Route: 050
     Dates: start: 20190201, end: 20190204
  3. DUODOPA [Suspect]
     Active Substance: CARBIDOPA\LEVODOPA
     Dosage: MD= 3ML CD= 2.4ML/HR DURING 16HRS ED= 1M
     Route: 050
     Dates: start: 20190213, end: 20190227
  4. DUODOPA [Suspect]
     Active Substance: CARBIDOPA\LEVODOPA
     Dosage: MD= 2.5ML, CD= 2.0ML/HR DURING 16HRS, ED= 1ML
     Route: 050
     Dates: start: 20190716, end: 20191126
  5. DUODOPA [Suspect]
     Active Substance: CARBIDOPA\LEVODOPA
     Indication: PARKINSON^S DISEASE
     Dosage: MD:5.5ML. CD: 2.5ML/H FOR 16HRS; ED: 1ML
     Route: 050
     Dates: start: 20181217, end: 20181218
  6. DUODOPA [Suspect]
     Active Substance: CARBIDOPA\LEVODOPA
     Dosage: MD= 2.5ML, CD= 1.8ML/HR DURING 16HRS, ED= 1ML
     Route: 050
     Dates: start: 20191126
  7. DUODOPA [Suspect]
     Active Substance: CARBIDOPA\LEVODOPA
     Dosage: MD=2.5ML, CD=2.4ML/HOUR DURING 16HOURS,ED= 1ML
     Route: 050
     Dates: start: 20200915
  8. DUODOPA [Suspect]
     Active Substance: CARBIDOPA\LEVODOPA
     Dosage: MD= 3.1ML CD= 2.8ML/HR DURING 16HRS ED= 1ML
     Route: 050
     Dates: start: 20190206, end: 20190209
  9. DUODOPA [Suspect]
     Active Substance: CARBIDOPA\LEVODOPA
     Dosage: MD= 2.5ML, CD= 2.2 ML/HR DURING 16HRS, ED= 1ML
     Route: 050
     Dates: start: 20190304, end: 20190412
  10. DUODOPA [Suspect]
     Active Substance: CARBIDOPA\LEVODOPA
     Dosage: MD= 3.1ML CD= 3ML/HR DURING 16HRS ED= 1.2ML
     Route: 050
     Dates: start: 20190204, end: 20190206
  11. DUODOPA [Suspect]
     Active Substance: CARBIDOPA\LEVODOPA
     Dosage: MD= 2ML, CD= 2.1ML/HR DURING 16HRS, ED= 1ML
     Route: 050
     Dates: start: 20190702, end: 20190716
  12. ASAFLOW [Concomitant]
     Active Substance: ASPIRIN
     Indication: PRODUCT USED FOR UNKNOWN INDICATION
  13. MOVICOL [Concomitant]
     Active Substance: POLYETHYLENE GLYCOL 3350\POTASSIUM CHLORIDE\SODIUM BICARBONATE\SODIUM CHLORIDE
     Indication: PRODUCT USED FOR UNKNOWN INDICATION
     Route: 065
  14. DUODOPA [Suspect]
     Active Substance: CARBIDOPA\LEVODOPA
     Dosage: INITIAL TITRATION: DOSAGES CONTINUOUSLY MONITORED AND ADJUSTED
     Route: 050
     Dates: start: 20181218, end: 20181221
  15. DUODOPA [Suspect]
     Active Substance: CARBIDOPA\LEVODOPA
     Dosage: MD= 3.1ML CD= 2.8ML/HR DURING 16HRS ED= 0.7ML
     Route: 050
     Dates: start: 20190125, end: 20190128
  16. DUODOPA [Suspect]
     Active Substance: CARBIDOPA\LEVODOPA
     Dosage: MD= 2.5ML, CD= 2.4ML/HR DURING 16HRS, ED= 1ML
     Route: 050
     Dates: start: 20190412, end: 20190702
  17. DUODOPA [Suspect]
     Active Substance: CARBIDOPA\LEVODOPA
     Dosage: UNKNOWN DOSAGES
     Route: 050
     Dates: end: 20200201
  18. DUODOPA [Suspect]
     Active Substance: CARBIDOPA\LEVODOPA
     Dosage: MD:2.5ML. CD: 2.1ML/H FOR 16HRS; ED: 0.5ML
     Route: 050
     Dates: start: 20181221, end: 20190107
  19. DUODOPA [Suspect]
     Active Substance: CARBIDOPA\LEVODOPA
     Dosage: MD= 2.4ML CD= 2.6ML/HR DURING 16HRS ED= 0.5ML
     Route: 050
     Dates: start: 20190121, end: 20190123
  20. DUODOPA [Suspect]
     Active Substance: CARBIDOPA\LEVODOPA
     Dosage: MD= 2.5ML, CD= 2.2ML/HR DURING 16HRS, ED= 1ML
     Route: 050
     Dates: start: 20190227, end: 20190304
  21. DUODOPA [Suspect]
     Active Substance: CARBIDOPA\LEVODOPA
     Dosage: MD=2.5ML, CD=2.6ML/HOUR DURING 16HOURS,ED= 1ML
     Route: 050
     Dates: start: 20200201, end: 20200915
  22. DUODOPA [Suspect]
     Active Substance: CARBIDOPA\LEVODOPA
     Dosage: MD= 2.4ML CD= 2.8ML/HR DURING 16HRSED= 0.7ML
     Route: 050
     Dates: start: 20190123, end: 20190125
  23. DUODOPA [Suspect]
     Active Substance: CARBIDOPA\LEVODOPA
     Dosage: MD= 3.1ML  CD= 2.6ML/HR DURING 16HRS ED= 1ML
     Route: 050
     Dates: start: 20190209, end: 20190213
  24. DUODOPA [Suspect]
     Active Substance: CARBIDOPA\LEVODOPA
     Dosage: MD= 3.1ML CD= 3ML/HR DURING 16HRS ED= 1.2ML
     Route: 050
     Dates: start: 20190128, end: 20190201

REACTIONS (26)
  - Bacterial infection [Unknown]
  - On and off phenomenon [Not Recovered/Not Resolved]
  - Stoma site erythema [Unknown]
  - Gait inability [Not Recovered/Not Resolved]
  - Dysstasia [Unknown]
  - Loss of personal independence in daily activities [Unknown]
  - Tremor [Not Recovered/Not Resolved]
  - Mobility decreased [Unknown]
  - Stoma site inflammation [Recovered/Resolved]
  - Stoma site hypergranulation [Unknown]
  - Stoma site infection [Not Recovered/Not Resolved]
  - Parkinson^s disease [Unknown]
  - Device issue [Unknown]
  - Device occlusion [Recovered/Resolved]
  - Device issue [Unknown]
  - Dysphagia [Unknown]
  - Stoma site discharge [Not Recovered/Not Resolved]
  - Posture abnormal [Unknown]
  - Hyperkinesia [Unknown]
  - Wheelchair user [Unknown]
  - Therapeutic product effect incomplete [Not Recovered/Not Resolved]
  - Muscle rigidity [Unknown]
  - Cystitis [Unknown]
  - Dyskinesia [Not Recovered/Not Resolved]
  - Stoma site hypergranulation [Recovered/Resolved]
  - Stoma site reaction [Unknown]

NARRATIVE: CASE EVENT DATE: 201812
